FAERS Safety Report 8847210 (Version 2)
Quarter: 2012Q4

REPORT INFORMATION
  Report Type: Spontaneous
  Country: SE (occurrence: None)
  Receive Date: 20121016
  Receipt Date: 20121023
  Transmission Date: 20130627
  Serious: Yes (Hospitalization, Other)
  Sender: FDA-Public Use
  Company Number: AUR-APL-2012-04396

PATIENT
  Age: 78 Year
  Sex: Female

DRUGS (4)
  1. METFORMIN (METFORMIN) [Suspect]
     Indication: DIABETES MELLITUS
     Route: 048
  2. ARICEPT [Suspect]
     Indication: DEMENTIA
     Route: 048
  3. LEVAXIN (LEVOTHYROXINE SODIUM) [Concomitant]
  4. INSULIN (INSULIN) [Concomitant]

REACTIONS (9)
  - Nausea [None]
  - Decreased appetite [None]
  - Vomiting [None]
  - Diarrhoea [None]
  - Gastroenteritis [None]
  - Hypoglycaemia [None]
  - Anxiety [None]
  - Confusional state [None]
  - Dehydration [None]
